FAERS Safety Report 10547848 (Version 1)
Quarter: 2014Q4

REPORT INFORMATION
  Report Type: Spontaneous
  Country: US (occurrence: None)
  Receive Date: 20141027
  Receipt Date: 20141027
  Transmission Date: 20150529
  Serious: Yes (Other)
  Sender: FDA-Public Use
  Company Number: None

PATIENT
  Age: 47 Year
  Sex: Female
  Weight: 54.43 kg

DRUGS (1)
  1. CLINDAMYCIN [Suspect]
     Active Substance: CLINDAMYCIN\CLINDAMYCIN PHOSPHATE
     Indication: OSTEOMYELITIS
     Dosage: 4 PILLS DAY, TAKEN BY MOUTH
     Route: 048
     Dates: start: 20141006, end: 20141019

REACTIONS (7)
  - Oropharyngeal pain [None]
  - Chills [None]
  - Chest pain [None]
  - Vaginal haemorrhage [None]
  - Pharyngeal oedema [None]
  - Middle insomnia [None]
  - Diarrhoea [None]

NARRATIVE: CASE EVENT DATE: 20141019
